FAERS Safety Report 23922698 (Version 2)
Quarter: 2024Q2

REPORT INFORMATION
  Report Type: Spontaneous
  Country: US (occurrence: US)
  Receive Date: 20240531
  Receipt Date: 20240603
  Transmission Date: 20240716
  Serious: No
  Sender: FDA-Public Use
  Company Number: US-ELI_LILLY_AND_COMPANY-US202405002206

PATIENT
  Age: 71 Year
  Sex: Female

DRUGS (7)
  1. ADCIRCA [Suspect]
     Active Substance: TADALAFIL
     Indication: Pulmonary arterial hypertension
     Dosage: 40 MG, DAILY
     Route: 048
     Dates: start: 202202
  2. REMODULIN [Suspect]
     Active Substance: TREPROSTINIL
     Indication: Pulmonary arterial hypertension
     Dosage: 174NG/KG/MIN, CONTINUOUS INTRAVENOUSLY
     Route: 042
     Dates: start: 202103
  3. REMODULIN [Suspect]
     Active Substance: TREPROSTINIL
     Dosage: 179.89 NG/KG/MIN, CONTINUOUS
     Route: 058
     Dates: start: 202104
  4. REMODULIN [Suspect]
     Active Substance: TREPROSTINIL
     Dosage: 174NG/KG/MIN, CONTINUOUS INTRAVENOUSLY
     Route: 042
     Dates: start: 202104
  5. REMODULIN [Suspect]
     Active Substance: TREPROSTINIL
     Dosage: UNK, UNKNOWN
     Route: 065
     Dates: start: 202305
  6. OPSUMIT [Concomitant]
     Active Substance: MACITENTAN
     Indication: Product used for unknown indication
     Dosage: UNK, UNKNOWN
     Route: 065
  7. SOTATERCEPT [Concomitant]
     Active Substance: SOTATERCEPT
     Indication: Product used for unknown indication
     Dosage: UNK, UNKNOWN
     Route: 065

REACTIONS (3)
  - Oxygen saturation decreased [Unknown]
  - Headache [Unknown]
  - Diarrhoea [Not Recovered/Not Resolved]
